FAERS Safety Report 8349044-8 (Version None)
Quarter: 2012Q2

REPORT INFORMATION
  Report Type: 
  Country: None (occurrence: None)
  Receive Date: 20120510
  Receipt Date: 20120502
  Transmission Date: 20120825
  Serious: Yes (Other)
  Sender: FDA-Public Use
  Company Number: US-BAYER-2012-043054

PATIENT
  Sex: Female

DRUGS (2)
  1. MIRENA [Suspect]
     Dosage: 20 MCG/24HR, CONT
     Dates: start: 20070101, end: 20090101
  2. MIRENA [Suspect]
     Dosage: 20 MCG/24HR, CONT
     Dates: start: 20100101

REACTIONS (8)
  - ANXIETY [None]
  - DEVICE DISLOCATION [None]
  - POSTPARTUM DEPRESSION [None]
  - PANIC ATTACK [None]
  - VISUAL ACUITY REDUCED [None]
  - DEPRESSION [None]
  - ALOPECIA [None]
  - ARTHRALGIA [None]
